FAERS Safety Report 26196903 (Version 1)
Quarter: 2025Q4

REPORT INFORMATION
  Report Type: Other
  Country: GB (occurrence: GB)
  Receive Date: 20251224
  Receipt Date: 20251224
  Transmission Date: 20260118
  Serious: Yes (Other)
  Sender: STRIDES
  Company Number: GB-PHARMVIT-4556-3352-ER25-RN1721

PATIENT
  Age: 70 Year
  Sex: Female

DRUGS (4)
  1. PREDNISOLONE [Suspect]
     Active Substance: PREDNISOLONE
     Indication: Product used for unknown indication
     Dosage: 2.5 MG, QD
     Route: 065
  2. PREDNISOLONE [Suspect]
     Active Substance: PREDNISOLONE
     Dosage: 2.5MG DAILY WHICH WAS INCREASED TO 5MG
     Route: 065
  3. PREDNISOLONE [Suspect]
     Active Substance: PREDNISOLONE
     Dosage: OFTEN 10MG FOR SOME WEEKS
     Route: 065
  4. PREDNISOLONE [Suspect]
     Active Substance: PREDNISOLONE
     Dosage: CONTINUES TO WEAN FROM 5MG DAY TO 2.5MG OVER 7 WEEKS
     Route: 065

REACTIONS (3)
  - Emotional disorder [Unknown]
  - Imperception [Unknown]
  - Memory impairment [Unknown]
